FAERS Safety Report 8496742-1 (Version None)
Quarter: 2012Q3

REPORT INFORMATION
  Report Type: 
  Country: None (occurrence: None)
  Receive Date: 20120709
  Receipt Date: 20120625
  Transmission Date: 20120928
  Serious: Yes (Death, Life-Threatening, Other)
  Sender: FDA-Public Use
  Company Number: JP-ROCHE-1049168

PATIENT
  Sex: Male
  Weight: 50 kg

DRUGS (11)
  1. SULFAMETHOXAZOLE AND TRIMETHOPRIM [Suspect]
     Indication: PNEUMOCYSTIS JIROVECI PNEUMONIA
     Route: 065
     Dates: start: 20120221
  2. ASPIRIN [Concomitant]
     Route: 048
  3. ACTEMRA [Suspect]
     Indication: RHEUMATOID ARTHRITIS
     Route: 041
     Dates: start: 20111025, end: 20120216
  4. RHEUMATREX [Suspect]
     Indication: RHEUMATOID ARTHRITIS
     Route: 048
     Dates: start: 20100108, end: 20110705
  5. RABEPRAZOLE SODIUM [Concomitant]
     Indication: GASTROOESOPHAGEAL REFLUX DISEASE
     Route: 048
  6. ADALAT CC [Concomitant]
     Route: 048
  7. FOLIAMIN [Concomitant]
     Indication: PROPHYLAXIS
     Route: 048
  8. RHEUMATREX [Suspect]
     Route: 048
     Dates: start: 20110711
  9. PREDNISOLONE [Concomitant]
     Indication: RHEUMATOID ARTHRITIS
     Route: 048
  10. AZULENE SULFONATE SODIUM [Concomitant]
     Indication: GASTRITIS
     Dosage: SODIUM GUALENATE HYDRATE AND L GLUTAMINE
     Route: 048
  11. VOLTAREN-XR [Concomitant]
     Dosage: AT THE RIGHT TIME
     Route: 048

REACTIONS (7)
  - PNEUMONIA CYTOMEGALOVIRAL [None]
  - BONE MARROW FAILURE [None]
  - PNEUMONIA [None]
  - DISSEMINATED INTRAVASCULAR COAGULATION [None]
  - SEPTIC SHOCK [None]
  - PNEUMOCYSTIS JIROVECI PNEUMONIA [None]
  - INTERSTITIAL LUNG DISEASE [None]
